FAERS Safety Report 10936994 (Version 2)
Quarter: 2015Q2

REPORT INFORMATION
  Report Type: Spontaneous
  Country: US (occurrence: US)
  Receive Date: 20150321
  Receipt Date: 20150525
  Transmission Date: 20150821
  Serious: No
  Sender: FDA-Public Use
  Company Number: US-JNJFOC-20130508334

PATIENT
  Sex: Male

DRUGS (1)
  1. TOPAMAX [Suspect]
     Active Substance: TOPIRAMATE
     Indication: SEIZURE
     Dosage: 2 TABLETS OF 25 MG IN THE MORNING AND 2 TABLETS OF 25 MG AT BEDTIME
     Route: 048
     Dates: start: 201212

REACTIONS (1)
  - Hypohidrosis [Not Recovered/Not Resolved]
